FAERS Safety Report 7207094-9 (Version None)
Quarter: 2011Q1

REPORT INFORMATION
  Report Type: 
  Country: None (occurrence: None)
  Receive Date: 20110103
  Receipt Date: 20101227
  Transmission Date: 20110831
  Serious: Yes (Hospitalization)
  Sender: FDA-Public Use
  Company Number: Z0004999B

PATIENT
  Sex: Male
  Weight: 63 kg

DRUGS (16)
  1. FLUIMUCIL [Concomitant]
     Dosage: 2ML FOUR TIMES PER DAY
     Route: 055
     Dates: start: 20101225
  2. ADVAIR [Suspect]
     Indication: CHRONIC OBSTRUCTIVE PULMONARY DISEASE
     Route: 055
     Dates: start: 20091210, end: 20100107
  3. COLEX KLYSMA [Suspect]
     Indication: CONSTIPATION
     Dosage: 133ML PER DAY
     Route: 054
     Dates: start: 20101222, end: 20101225
  4. DIPIDOLOR [Suspect]
     Indication: PAIN PROPHYLAXIS
     Dosage: 15MG FIVE TIMES PER DAY
     Route: 030
     Dates: start: 20101225, end: 20101227
  5. HYDROCORTISONE [Suspect]
     Dosage: 50MG PER DAY
     Route: 042
     Dates: start: 20101227, end: 20101228
  6. SUFENTANIL [Suspect]
     Indication: ANAESTHESIA
     Dosage: 25MCG THREE TIMES PER DAY
     Route: 008
     Dates: start: 20101224, end: 20101225
  7. BUPIVACAINE HCL [Suspect]
     Indication: ANAESTHESIA
     Dosage: 50ML THREE TIMES PER DAY
     Route: 008
     Dates: start: 20101224, end: 20101225
  8. AMOXICILLIN AND CLAVULANATE POTASSIUM [Suspect]
     Indication: INFECTION
     Dosage: 1000MG THREE TIMES PER DAY
     Route: 042
     Dates: start: 20101223
  9. FRAGMIN [Suspect]
     Indication: THROMBOSIS PROPHYLAXIS
     Dosage: 2500IU PER DAY
     Route: 058
     Dates: start: 20101222
  10. ACETAMINOPHEN [Suspect]
     Indication: PAIN PROPHYLAXIS
     Dosage: 1000MG THREE TIMES PER DAY
     Route: 048
     Dates: start: 20101225
  11. NEXIUM [Suspect]
     Indication: ABDOMINAL PAIN UPPER
     Dosage: 20MG PER DAY
     Route: 048
     Dates: start: 20101224, end: 20101228
  12. PERFALGAN [Suspect]
     Indication: PAIN PROPHYLAXIS
     Dosage: 1000MG THREE TIMES PER DAY
     Route: 042
     Dates: start: 20101224, end: 20101225
  13. HYDROCORTISON [Concomitant]
     Dosage: 100MG TWICE PER DAY
     Route: 042
     Dates: start: 20101224, end: 20101226
  14. HYDROCORTISON [Concomitant]
     Dosage: 100MG PER DAY
     Route: 042
     Dates: start: 20101226, end: 20101227
  15. ATROVENT [Concomitant]
     Dosage: 40MCG FOUR TIMES PER DAY
     Route: 055
     Dates: start: 20101223, end: 20101224
  16. GW685698 + GW642444 INHALATION POWDER [Suspect]
     Indication: CHRONIC OBSTRUCTIVE PULMONARY DISEASE
     Route: 055
     Dates: start: 20100107

REACTIONS (1)
  - ILEUS [None]
